FAERS Safety Report 10258267 (Version 1)
Quarter: 2014Q2

REPORT INFORMATION
  Report Type: Spontaneous
  Country: IT (occurrence: IT)
  Receive Date: 20140625
  Receipt Date: 20140625
  Transmission Date: 20141212
  Serious: Yes (Other)
  Sender: FDA-Public Use
  Company Number: IT-MALLINCKRODT-T201402559

PATIENT
  Age: 65 Year
  Sex: Male

DRUGS (2)
  1. OPTIRAY [Suspect]
     Indication: COMPUTERISED TOMOGRAM ABDOMEN
     Dosage: 120 MG, SINGLE
     Route: 042
     Dates: start: 20140331, end: 20140331
  2. FUROSEMIDE [Concomitant]

REACTIONS (2)
  - Hyperhidrosis [Recovering/Resolving]
  - Presyncope [Recovering/Resolving]
